FAERS Safety Report 8255943-8 (Version None)
Quarter: 2012Q2

REPORT INFORMATION
  Report Type: 
  Country: None (occurrence: None)
  Receive Date: 20120403
  Receipt Date: 20120319
  Transmission Date: 20120825
  Serious: Yes (Other)
  Sender: FDA-Public Use
  Company Number: DE-COVIDIEN/TYCO HEALTHCARE/MALLINCKRODT-T201201235

PATIENT
  Sex: Female

DRUGS (2)
  1. EXALGO [Suspect]
     Indication: BACK PAIN
     Dosage: 16 MG, QD
     Route: 048
     Dates: start: 20110201
  2. HYDROMORPHONE HCL [Suspect]
     Indication: BACK PAIN
     Dosage: 8 MG, QD
     Route: 048
     Dates: start: 20111001

REACTIONS (7)
  - NIGHT SWEATS [None]
  - NAUSEA [None]
  - WEIGHT DECREASED [None]
  - VOMITING [None]
  - HALLUCINATION [None]
  - CHEST PAIN [None]
  - DRUG INTOLERANCE [None]
